FAERS Safety Report 22320827 (Version 1)
Quarter: 2023Q2

REPORT INFORMATION
  Report Type: Spontaneous
  Country: US (occurrence: US)
  Receive Date: 20230515
  Receipt Date: 20230515
  Transmission Date: 20230722
  Serious: Yes (Other)
  Sender: FDA-Public Use
  Company Number: US-APIL-2314322US

PATIENT
  Sex: Female

DRUGS (13)
  1. BOTOX [Suspect]
     Active Substance: ONABOTULINUMTOXINA
     Indication: Product used for unknown indication
     Dosage: UNK UNK, SINGLE
  2. SUMATRIPTAN [Concomitant]
     Active Substance: SUMATRIPTAN
  3. RIZATRIPTAN [Concomitant]
     Active Substance: RIZATRIPTAN
     Indication: Headache
  4. DICLOFENAC [Concomitant]
     Active Substance: DICLOFENAC
  5. FIORICET [Concomitant]
     Active Substance: ACETAMINOPHEN\BUTALBITAL\CAFFEINE
  6. MECLIZINE HYDROCHLORIDE [Concomitant]
     Active Substance: MECLIZINE HYDROCHLORIDE
  7. AJOVY [Concomitant]
     Active Substance: FREMANEZUMAB-VFRM
  8. MELOXICAM [Concomitant]
     Active Substance: MELOXICAM
  9. AMITRIPTYLINE [Concomitant]
     Active Substance: AMITRIPTYLINE
     Indication: Dry mouth
  10. DULOXETINE [Concomitant]
     Active Substance: DULOXETINE
     Indication: Costochondritis
  11. DULOXETINE [Concomitant]
     Active Substance: DULOXETINE
     Indication: Headache
  12. METOPROLOL [Concomitant]
     Active Substance: METOPROLOL
     Indication: Hypertension
  13. METOPROLOL [Concomitant]
     Active Substance: METOPROLOL
     Indication: Headache

REACTIONS (8)
  - Deafness [Unknown]
  - Photophobia [Unknown]
  - Visual snow syndrome [Unknown]
  - Parosmia [Unknown]
  - Paraesthesia [Unknown]
  - Drug ineffective [Unknown]
  - Dysphagia [Unknown]
  - Headache [Unknown]
